FAERS Safety Report 9801522 (Version 2)
Quarter: 2014Q1

REPORT INFORMATION
  Report Type: Spontaneous
  Country: US (occurrence: US)
  Receive Date: 20140107
  Receipt Date: 20140107
  Transmission Date: 20141002
  Serious: No
  Sender: FDA-Public Use
  Company Number: US-GILEAD-US-CVT-100480

PATIENT
  Age: 75 Year
  Sex: Female
  Weight: 60.33 kg

DRUGS (10)
  1. RANEXA [Suspect]
     Indication: ANGINA PECTORIS
  2. ADVAIR [Concomitant]
  3. ALBUTEROL [Concomitant]
  4. CARAFATE [Concomitant]
  5. CARVEDILOL [Concomitant]
  6. CLARITIN [Concomitant]
  7. DALMANE [Concomitant]
  8. DARVOCET [Concomitant]
  9. FIORICET [Concomitant]
  10. SOMA [Concomitant]

REACTIONS (1)
  - Dyspnoea [Recovered/Resolved]
